FAERS Safety Report 16966887 (Version 2)
Quarter: 2019Q4

REPORT INFORMATION
  Report Type: Report from Study
  Country: US (occurrence: US)
  Receive Date: 20191028
  Receipt Date: 20191202
  Transmission Date: 20200122
  Serious: Yes (Hospitalization, Other)
  Sender: FDA-Public Use
  Company Number: US-SA-2019SA296455

PATIENT
  Age: 94 Year
  Sex: Female

DRUGS (3)
  1. DUPILUMAB [Suspect]
     Active Substance: DUPILUMAB
     Indication: DERMATITIS
     Dosage: 300 MG, QOW
     Route: 058
     Dates: start: 20190517
  2. DUPILUMAB [Suspect]
     Active Substance: DUPILUMAB
     Indication: ECZEMA
     Dosage: 2 DF, 1X
     Route: 058
     Dates: start: 2019, end: 2019
  3. DUPILUMAB [Suspect]
     Active Substance: DUPILUMAB
     Indication: PSORIASIS

REACTIONS (4)
  - Drug dose omission by device [Unknown]
  - Fall [Unknown]
  - Wrong technique in device usage process [Unknown]
  - Hip fracture [Unknown]

NARRATIVE: CASE EVENT DATE: 20191023
